FAERS Safety Report 9069227 (Version 5)
Quarter: 2013Q3

REPORT INFORMATION
  Report Type: Spontaneous
  Country: BR (occurrence: BR)
  Receive Date: 20130215
  Receipt Date: 20130723
  Transmission Date: 20140515
  Serious: Yes (Other)
  Sender: FDA-Public Use
  Company Number: BR-SANOFI-AVENTIS-2013SA011700

PATIENT
  Age: 66 Year
  Sex: Female
  Weight: 67.3 kg

DRUGS (16)
  1. LEFLUNOMIDE [Suspect]
     Indication: RHEUMATOID ARTHRITIS
     Route: 048
     Dates: start: 2009
  2. BLINDED THERAPY [Suspect]
     Indication: RHEUMATOID ARTHRITIS
     Route: 058
     Dates: start: 20110810
  3. TOCILIZUMAB [Suspect]
     Indication: RHEUMATOID ARTHRITIS
     Route: 058
     Dates: start: 20110810, end: 20120111
  4. TOCILIZUMAB [Suspect]
     Indication: RHEUMATOID ARTHRITIS
     Dosage: BY AUTOINJECTOR METHOD
     Route: 058
     Dates: start: 20120208, end: 20130128
  5. METHOTREXATE [Suspect]
     Indication: PRODUCT USED FOR UNKNOWN INDICATION
     Route: 065
  6. ETANERCEPT [Suspect]
     Indication: PRODUCT USED FOR UNKNOWN INDICATION
     Route: 065
  7. PREDNISONE [Concomitant]
     Indication: RHEUMATOID ARTHRITIS
     Route: 048
     Dates: start: 2009
  8. CAPTOPRIL [Concomitant]
     Route: 048
     Dates: start: 2001
  9. METFORMIN HYDROCHLORIDE [Concomitant]
     Route: 048
     Dates: start: 2008
  10. OMEPRAZOLE [Concomitant]
     Route: 048
     Dates: start: 2001
  11. GLICLAZIDE [Concomitant]
     Route: 048
     Dates: start: 20110817
  12. CALCIUM CARBONATE [Concomitant]
     Route: 048
     Dates: start: 20110908
  13. VITAMIN D3 [Concomitant]
     Route: 048
     Dates: start: 20110908
  14. FLUOXETINE HYDROCHLORIDE [Concomitant]
     Route: 048
     Dates: start: 20120309
  15. CYCLOBENZAPRINE HYDROCHLORIDE [Concomitant]
     Route: 048
     Dates: start: 20120309
  16. MYLANTA PLUS [Concomitant]
     Route: 048
     Dates: start: 20120626

REACTIONS (3)
  - Anal squamous cell carcinoma [Unknown]
  - Painful defaecation [Unknown]
  - Haematochezia [Unknown]
